FAERS Safety Report 13211809 (Version 1)
Quarter: 2017Q1

REPORT INFORMATION
  Report Type: Spontaneous
  Country: US (occurrence: US)
  Receive Date: 20170209
  Receipt Date: 20170209
  Transmission Date: 20170428
  Serious: No
  Sender: FDA-Public Use
  Company Number: US-ALLERGAN-1657501US

PATIENT
  Age: 71 Year
  Sex: Female
  Weight: 59.41 kg

DRUGS (1)
  1. BOTOX [Suspect]
     Active Substance: ONABOTULINUMTOXINA
     Indication: DYSKINESIA
     Dosage: UNK, SINGLE
     Route: 030
     Dates: start: 20160502, end: 20160502

REACTIONS (4)
  - Pain in jaw [Not Recovered/Not Resolved]
  - Epistaxis [Not Recovered/Not Resolved]
  - Off label use [Unknown]
  - Sinusitis [Not Recovered/Not Resolved]

NARRATIVE: CASE EVENT DATE: 20160505
